FAERS Safety Report 7422406-9 (Version None)
Quarter: 2011Q2

REPORT INFORMATION
  Report Type: 
  Country: None (occurrence: None)
  Receive Date: 20110419
  Receipt Date: 20110408
  Transmission Date: 20111010
  Serious: No
  Sender: FDA-Public Use
  Company Number: US-BIOGENIDEC-2011BI013551

PATIENT
  Age: 67 Year
  Sex: Female

DRUGS (2)
  1. TYSABRI [Suspect]
     Indication: CROHN'S DISEASE
     Route: 042
     Dates: start: 20101020
  2. ATIVAN [Concomitant]
     Indication: PREMEDICATION
     Dates: start: 20110201

REACTIONS (3)
  - BACK PAIN [None]
  - UNDERDOSE [None]
  - CHILLS [None]
